FAERS Safety Report 6254912-7 (Version None)
Quarter: 2009Q3

REPORT INFORMATION
  Report Type: 
  Country: None (occurrence: None)
  Receive Date: 20090702
  Receipt Date: 20090623
  Transmission Date: 20100115
  Serious: Yes (Other)
  Sender: FDA-Public Use
  Company Number: US-PFIZER INC-2009234770

PATIENT
  Age: 39 Year
  Sex: Female
  Weight: 108.18 kg

DRUGS (16)
  1. PHENYTOIN AND PHENYTOIN SODIUM [Suspect]
     Indication: CONVULSION
     Dosage: 100 MG, 3X/DAY
     Dates: start: 20040101
  2. TIOTROPIUM BROMIDE MONOHYDRATE [Suspect]
     Indication: CHRONIC OBSTRUCTIVE PULMONARY DISEASE
     Dosage: 18 MCG
     Dates: start: 20080101
  3. TIOTROPIUM BROMIDE MONOHYDRATE [Suspect]
     Indication: EMPHYSEMA
  4. GABAPENTIN [Suspect]
     Indication: FIBROMYALGIA
     Dosage: 100 MG, 4X/DAY
     Dates: start: 20080101
  5. PREGABALIN [Suspect]
     Indication: FIBROMYALGIA
     Dosage: 100 MG, 2X/DAY
     Dates: start: 20080101
  6. HYDROXYZINE HCL [Suspect]
     Indication: ANXIETY
     Dosage: 25 MG, 4X/DAY
     Dates: start: 20040101
  7. OLMESARTAN [Concomitant]
     Dosage: UNK
  8. DILTIAZEM [Concomitant]
     Dosage: UNK
  9. CYCLOBENZAPRINE [Concomitant]
     Dosage: UNK
  10. ESCITALOPRAM [Concomitant]
     Dosage: UNK
  11. ESOMEPRAZOLE [Concomitant]
     Dosage: UNK
  12. PROMETHAZINE [Concomitant]
     Dosage: UNK
  13. ROPINIROLE [Concomitant]
     Dosage: UNK
  14. ACETAMINOPHEN AND HYDROCODONE BITARTRATE [Concomitant]
     Dosage: UNK
  15. METHOCARBAMOL [Concomitant]
     Dosage: UNK
  16. TRAMADOL [Concomitant]
     Dosage: UNK

REACTIONS (9)
  - ARTHROPATHY [None]
  - BACK INJURY [None]
  - BLOOD CHOLESTEROL INCREASED [None]
  - CYST [None]
  - FALL [None]
  - JOINT INJURY [None]
  - NECK INJURY [None]
  - PULMONARY EMBOLISM [None]
  - THYROID NEOPLASM [None]
